FAERS Safety Report 9260334 (Version 1)
Quarter: 2013Q2

REPORT INFORMATION
  Report Type: Report from Study
  Country: IN (occurrence: IN)
  Receive Date: 20130429
  Receipt Date: 20130429
  Transmission Date: 20140414
  Serious: Yes (Hospitalization, Disabling)
  Sender: FDA-Public Use
  Company Number: PHHY2013IN040505

PATIENT
  Age: 67 Year
  Sex: Female

DRUGS (4)
  1. ACLASTA [Suspect]
     Indication: OSTEOARTHRITIS
     Dosage: 5 MG/100ML/YEAR
     Route: 042
     Dates: start: 201109
  2. ACLASTA [Suspect]
     Dosage: 5 MG/100ML/YEAR
     Route: 042
     Dates: start: 20130301
  3. TELMA [Concomitant]
     Indication: HYPERTENSION
     Dosage: 40 MG, UNK
     Route: 048
  4. CALCIUM [Concomitant]

REACTIONS (1)
  - Ankle fracture [Not Recovered/Not Resolved]
